FAERS Safety Report 25747840 (Version 1)
Quarter: 2025Q3

REPORT INFORMATION
  Report Type: Spontaneous
  Country: MY (occurrence: MY)
  Receive Date: 20250901
  Receipt Date: 20250901
  Transmission Date: 20251020
  Serious: Yes (Other)
  Sender: NOVARTIS
  Company Number: MY-002147023-NVSC2025MY129731

PATIENT
  Age: 59 Year
  Sex: Male

DRUGS (7)
  1. NILOTINIB [Suspect]
     Active Substance: NILOTINIB
     Indication: Chronic myeloid leukaemia
     Dosage: 300 MG, BID
     Route: 065
     Dates: start: 201906
  2. NILOTINIB [Suspect]
     Active Substance: NILOTINIB
     Dosage: 450 MG, QD (300MG OM, 150MG PM)
     Route: 065
     Dates: start: 201907
  3. NILOTINIB [Suspect]
     Active Substance: NILOTINIB
     Dosage: 150 MG, BID
     Route: 065
     Dates: start: 201908
  4. NILOTINIB [Suspect]
     Active Substance: NILOTINIB
     Dosage: 450 MG, QD (300MG OM, 150MG PM)
     Route: 065
     Dates: start: 201909
  5. NILOTINIB [Suspect]
     Active Substance: NILOTINIB
     Dosage: 300 MG, BID
     Route: 065
     Dates: start: 201910, end: 201912
  6. METFORMIN [Concomitant]
     Active Substance: METFORMIN HYDROCHLORIDE
     Indication: Type 2 diabetes mellitus
     Route: 065
     Dates: start: 201904
  7. HYDROXYUREA [Concomitant]
     Active Substance: HYDROXYUREA
     Indication: Product used for unknown indication
     Route: 065
     Dates: start: 201904, end: 201906

REACTIONS (3)
  - Thrombocytopenia [Unknown]
  - Leukoerythroblastic anaemia [Unknown]
  - Treatment failure [Unknown]

NARRATIVE: CASE EVENT DATE: 20190801
